FAERS Safety Report 7540416-8 (Version None)
Quarter: 2011Q2

REPORT INFORMATION
  Report Type: 
  Country: None (occurrence: None)
  Receive Date: 20110610
  Receipt Date: 20110322
  Transmission Date: 20111010
  Serious: Yes (Other)
  Sender: FDA-Public Use
  Company Number: US-ELI_LILLY_AND_COMPANY-US201106001836

PATIENT
  Sex: Female

DRUGS (4)
  1. CHEMOTHERAPEUTICS [Concomitant]
     Dosage: UNK
     Dates: start: 20110317, end: 20110317
  2. CHEMOTHERAPEUTICS [Concomitant]
     Dosage: UNK
     Dates: start: 20110315, end: 20110315
  3. FORTEO [Suspect]
     Dosage: 20 UG, QD
     Route: 058
     Dates: start: 20100713
  4. CHEMOTHERAPEUTICS [Concomitant]
     Dosage: UNK
     Dates: start: 20110316, end: 20110316

REACTIONS (1)
  - MALAISE [None]
